FAERS Safety Report 15839233 (Version 3)
Quarter: 2019Q1

REPORT INFORMATION
  Report Type: Spontaneous
  Country: JP (occurrence: JP)
  Receive Date: 20190117
  Receipt Date: 20190327
  Transmission Date: 20190417
  Serious: Yes (Hospitalization)
  Sender: FDA-Public Use
  Company Number: JP-ELI_LILLY_AND_COMPANY-JP201901003605

PATIENT
  Sex: Female
  Weight: 51 kg

DRUGS (16)
  1. AVASTIN [Suspect]
     Active Substance: BEVACIZUMAB
     Indication: COLON CANCER
     Dosage: 290 MG, CYCLICAL
     Route: 041
     Dates: start: 20170428, end: 20170907
  2. AVASTIN [Suspect]
     Active Substance: BEVACIZUMAB
     Dosage: 250 MG, CYCLICAL
     Route: 041
     Dates: start: 20170928, end: 20181101
  3. LEVOFOLINATE CALCIUM [Concomitant]
     Active Substance: LEVOLEUCOVORIN CALCIUM
     Indication: COLON CANCER STAGE IV
     Dosage: 300 MG, CYCLICAL
     Route: 041
     Dates: start: 20181122
  4. GOSHAJINKIGAN [Concomitant]
     Active Substance: HERBALS
     Dosage: UNK, TID
     Route: 048
  5. HEMOCURON [Concomitant]
     Active Substance: TRIBENOSIDE
     Indication: HAEMORRHOIDS
     Dosage: 200 MG, TID
     Route: 048
  6. MIYA-BM [Concomitant]
     Active Substance: CLOSTRIDIUM BUTYRICUM SPORES STRAIN M-55
     Indication: CONSTIPATION
  7. PYDOXAL [Concomitant]
     Active Substance: PYRIDOXAL
     Dosage: 10 MG, TID
     Route: 048
  8. LOPEMIN [LOPERAMIDE HYDROCHLORIDE] [Concomitant]
     Indication: DIARRHOEA
     Dosage: UNK, PRN
     Route: 048
  9. FLUOROURACIL. [Concomitant]
     Active Substance: FLUOROURACIL
     Dosage: 2200 MG
     Route: 041
     Dates: start: 20181122, end: 20181124
  10. CINAL [Concomitant]
     Active Substance: ASCORBIC ACID\CALCIUM PANTOTHENATE
     Indication: PIGMENTATION DISORDER
     Dosage: 1 G, TID
     Route: 048
  11. IRINOTECAN HYDROCHLORIDE. [Concomitant]
     Active Substance: IRINOTECAN HYDROCHLORIDE
     Indication: COLON CANCER STAGE IV
     Dosage: 160 MG, SINGLE
     Route: 041
     Dates: start: 20181122, end: 20181122
  12. MIYA-BM [Concomitant]
     Active Substance: CLOSTRIDIUM BUTYRICUM SPORES STRAIN M-55
     Indication: DIARRHOEA
     Dosage: UNK, TID
     Route: 048
  13. ENALAPRIL MALEATE. [Concomitant]
     Active Substance: ENALAPRIL MALEATE
     Indication: HYPERTENSION
     Dosage: 5 MG, EACH MORNING
     Route: 048
  14. FLUOROURACIL. [Concomitant]
     Active Substance: FLUOROURACIL
     Indication: COLON CANCER STAGE IV
     Dosage: 360 MG, CYCLICAL
     Route: 041
     Dates: start: 20181122
  15. FLUOROURACIL. [Concomitant]
     Active Substance: FLUOROURACIL
     Dosage: UNK
     Route: 041
     Dates: start: 20181220
  16. CYRAMZA [Suspect]
     Active Substance: RAMUCIRUMAB
     Indication: COLON CANCER STAGE IV
     Dosage: 280 MG, SINGLE
     Route: 041
     Dates: start: 20181122, end: 20181122

REACTIONS (3)
  - Alopecia [Unknown]
  - Hypertensive crisis [Recovered/Resolved]
  - Nephrotic syndrome [Recovering/Resolving]

NARRATIVE: CASE EVENT DATE: 20181220
